FAERS Safety Report 21335803 (Version 2)
Quarter: 2024Q3

REPORT INFORMATION
  Report Type: Report from Study
  Country: US (occurrence: US)
  Receive Date: 20220915
  Receipt Date: 20240813
  Transmission Date: 20241016
  Serious: No
  Sender: KYOWA
  Company Number: US-KYOWAKIRIN-2022BKK014380

PATIENT

DRUGS (2)
  1. BUROSUMAB [Suspect]
     Active Substance: BUROSUMAB
     Indication: Hereditary hypophosphataemic rickets
     Dosage: 40 MG, 1X/4 WEEKS
     Route: 065
     Dates: start: 20191003
  2. BUROSUMAB [Suspect]
     Active Substance: BUROSUMAB
     Dosage: UNK, 1X/4 WEEKS
     Route: 065

REACTIONS (3)
  - Restless legs syndrome [Unknown]
  - Sinusitis [Unknown]
  - Headache [Unknown]
